FAERS Safety Report 13501452 (Version 1)
Quarter: 2017Q2

REPORT INFORMATION
  Report Type: Spontaneous
  Country: US (occurrence: US)
  Receive Date: 20170501
  Receipt Date: 20170501
  Transmission Date: 20170830
  Serious: No
  Sender: FDA-Public Use
  Company Number: US-ROCHE-1839943

PATIENT
  Sex: Male

DRUGS (2)
  1. ESBRIET [Suspect]
     Active Substance: PIRFENIDONE
     Indication: EMPHYSEMA
  2. ESBRIET [Suspect]
     Active Substance: PIRFENIDONE
     Indication: FIBROSIS
     Route: 065

REACTIONS (1)
  - Dyspnoea [Unknown]
